FAERS Safety Report 6211192-6 (Version None)
Quarter: 2009Q2

REPORT INFORMATION
  Report Type: 
  Country: None (occurrence: None)
  Receive Date: 20090602
  Receipt Date: 20090526
  Transmission Date: 20091009
  Serious: Yes (Life-Threatening, Other)
  Sender: FDA-Public Use
  Company Number: US-BAYER-200911629BCC

PATIENT
  Age: 15 Year
  Sex: Female
  Weight: 45 kg

DRUGS (1)
  1. MIDOL [Suspect]
     Indication: DYSMENORRHOEA
     Dosage: 2 MIDOL TABLES OF UNKNOWN FORMULA, FOLLOWED BY 2 MORE AND 1 ADDITIONAL
     Dates: start: 20090501, end: 20090501

REACTIONS (4)
  - CARDIAC FAILURE [None]
  - DYSPNOEA [None]
  - MULTI-ORGAN FAILURE [None]
  - RENAL FAILURE [None]
